FAERS Safety Report 14289576 (Version 1)
Quarter: 2017Q4

REPORT INFORMATION
  Report Type: Spontaneous
  Country: US (occurrence: US)
  Receive Date: 20171214
  Receipt Date: 20171214
  Transmission Date: 20180321
  Serious: No
  Sender: FDA-Public Use
  Company Number: US-ACTELION-A-NJ2017-164198

PATIENT
  Age: 63 Year
  Sex: Male
  Weight: 86.62 kg

DRUGS (1)
  1. VELETRI [Suspect]
     Active Substance: EPOPROSTENOL
     Indication: PULMONARY HYPERTENSION
     Dosage: 8.6 NG/KG, PER MIN
     Route: 042

REACTIONS (4)
  - Catheter site erythema [Unknown]
  - Catheter site related reaction [Unknown]
  - Groin abscess [Unknown]
  - Catheter site inflammation [Unknown]
